FAERS Safety Report 19935562 (Version 1)
Quarter: 2021Q4

REPORT INFORMATION
  Report Type: Spontaneous
  Country: US (occurrence: US)
  Receive Date: 20211008
  Receipt Date: 20211008
  Transmission Date: 20220304
  Serious: No
  Sender: FDA-Public Use
  Company Number: US-SA-SAC20211005001380

PATIENT
  Sex: Male

DRUGS (14)
  1. DUPIXENT [Suspect]
     Active Substance: DUPILUMAB
     Dosage: 300 MG
     Route: 058
  2. MONTELUKAST SODIUM [Concomitant]
     Active Substance: MONTELUKAST SODIUM
  3. ALBUTEROL SULFATE [Concomitant]
     Active Substance: ALBUTEROL SULFATE
  4. OMEPRAZOLE [Concomitant]
     Active Substance: OMEPRAZOLE
  5. COMBIVENT [Concomitant]
     Active Substance: ALBUTEROL SULFATE\IPRATROPIUM BROMIDE
  6. STIOLTO RESPIMAT [Concomitant]
     Active Substance: OLODATEROL HYDROCHLORIDE\TIOTROPIUM BROMIDE MONOHYDRATE
  7. XOLAIR [Concomitant]
     Active Substance: OMALIZUMAB
  8. PROAIR HFA [Concomitant]
     Active Substance: ALBUTEROL SULFATE
  9. FLONASE ALLERGY RELIEF [Concomitant]
     Active Substance: FLUTICASONE PROPIONATE
  10. RESTASIS [Concomitant]
     Active Substance: CYCLOSPORINE
  11. ASMANEX HFA [Concomitant]
     Active Substance: MOMETASONE FUROATE
  12. PAZEO [Concomitant]
     Active Substance: OLOPATADINE HYDROCHLORIDE
  13. IPRATROPIUM BROMIDE [Concomitant]
     Active Substance: IPRATROPIUM BROMIDE
  14. AZELASTINE HYDROCHLORIDE [Concomitant]
     Active Substance: AZELASTINE HYDROCHLORIDE

REACTIONS (1)
  - Product dose omission issue [Unknown]
